FAERS Safety Report 8176573-2 (Version None)
Quarter: 2012Q1

REPORT INFORMATION
  Report Type: 
  Country: None (occurrence: None)
  Receive Date: 20120301
  Receipt Date: 20120221
  Transmission Date: 20120608
  Serious: Yes (Hospitalization)
  Sender: FDA-Public Use
  Company Number: US-GILEAD-2012-0048965

PATIENT
  Age: 61 Year
  Sex: Female

DRUGS (3)
  1. LETAIRIS [Suspect]
     Indication: PRODUCT USED FOR UNKNOWN INDICATION
     Dosage: 10 MG, UNK
     Route: 048
     Dates: start: 20091202
  2. ADCIRCA [Concomitant]
  3. VENTAVIS [Concomitant]

REACTIONS (4)
  - PNEUMONIA [None]
  - UNEVALUABLE EVENT [None]
  - SCLERODERMA [None]
  - DEHYDRATION [None]
